FAERS Safety Report 8907662 (Version 2)
Quarter: 2012Q4

REPORT INFORMATION
  Report Type: 
  Country: CH (occurrence: CH)
  Receive Date: 20121114
  Receipt Date: 20121213
  Transmission Date: 20130627
  Serious: Yes (Other)
  Sender: FDA-Public Use
  Company Number: CH-B.I. PHARMACEUTICALS,INC./RIDGEFIELD-2012-AP-00947SI

PATIENT
  Sex: Female

DRUGS (8)
  1. PRADAXA [Suspect]
     Indication: ATRIAL FIBRILLATION
     Dosage: 220 mg
     Route: 048
     Dates: start: 201012, end: 20120921
  2. PRADAXA [Suspect]
     Dosage: 150 mg
     Route: 048
  3. PRADAXA [Suspect]
     Dosage: 220 mg
     Route: 048
  4. CO-DIOVAN [Concomitant]
     Dosage: 160/12.5
  5. BELOK ZOK MITE [Concomitant]
  6. NORVASC 5 [Concomitant]
  7. SIMVASTATIN 20 [Concomitant]
  8. PANTOZOL [Concomitant]

REACTIONS (5)
  - Bladder disorder [Recovered/Resolved]
  - Post procedural haemorrhage [Unknown]
  - Haemorrhage [Unknown]
  - Haemorrhage [Recovered/Resolved]
  - Pain [Recovered/Resolved]
